FAERS Safety Report 6950885-X (Version None)
Quarter: 2010Q3

REPORT INFORMATION
  Report Type: 
  Country: None (occurrence: None)
  Receive Date: 20100828
  Receipt Date: 20100302
  Transmission Date: 20110219
  Serious: No
  Sender: FDA-Public Use
  Company Number: US-ABBOTT-10P-163-0630067-00

PATIENT
  Sex: Female
  Weight: 100.33 kg

DRUGS (14)
  1. NIASPAN [Suspect]
     Indication: BLOOD CHOLESTEROL INCREASED
     Dosage: DAILY AT NIGHT
     Route: 048
     Dates: start: 20100227
  2. ASPIRIN [Concomitant]
     Indication: PRODUCT USED FOR UNKNOWN INDICATION
  3. LIPITOR [Concomitant]
     Indication: PRODUCT USED FOR UNKNOWN INDICATION
  4. COUMADIN [Concomitant]
     Indication: PRODUCT USED FOR UNKNOWN INDICATION
  5. SYNTHROID [Concomitant]
     Indication: PRODUCT USED FOR UNKNOWN INDICATION
  6. COSOPT [Concomitant]
     Indication: PRODUCT USED FOR UNKNOWN INDICATION
     Dosage: EYE GTTS
  7. LUMIGAN [Concomitant]
     Indication: PRODUCT USED FOR UNKNOWN INDICATION
     Dosage: EYE GTTS
  8. HYZAAR [Concomitant]
     Indication: PRODUCT USED FOR UNKNOWN INDICATION
  9. NOVOLOG [Concomitant]
     Indication: PRODUCT USED FOR UNKNOWN INDICATION
  10. LANTUS [Concomitant]
     Indication: PRODUCT USED FOR UNKNOWN INDICATION
  11. METOPROLOL [Concomitant]
     Indication: PRODUCT USED FOR UNKNOWN INDICATION
  12. VITAMIN D [Concomitant]
     Indication: PRODUCT USED FOR UNKNOWN INDICATION
  13. ASCORBIC ACID [Concomitant]
     Indication: PRODUCT USED FOR UNKNOWN INDICATION
  14. FISH OIL [Concomitant]
     Indication: PRODUCT USED FOR UNKNOWN INDICATION

REACTIONS (1)
  - FLUSHING [None]
